FAERS Safety Report 4948811-8 (Version None)
Quarter: 2006Q1

REPORT INFORMATION
  Report Type: 
  Country: None (occurrence: None)
  Receive Date: 20060321
  Receipt Date: 20060309
  Transmission Date: 20060701
  Serious: Yes (Other)
  Sender: FDA-Public Use
  Company Number: SE-JNJFOC-20031002906

PATIENT
  Sex: Female

DRUGS (6)
  1. REMICADE [Suspect]
     Indication: RHEUMATOID ARTHRITIS
     Route: 042
  2. METHOTREXATE [Suspect]
     Indication: RHEUMATOID ARTHRITIS
     Route: 048
  3. CALCICHEW [Concomitant]
     Route: 048
  4. FEMANEST [Concomitant]
  5. FOLACIN [Concomitant]
  6. FOLACIN [Concomitant]

REACTIONS (3)
  - FATIGUE [None]
  - TUBERCULOSIS [None]
  - WEIGHT DECREASED [None]
